FAERS Safety Report 21883494 (Version 3)
Quarter: 2023Q1

REPORT INFORMATION
  Report Type: Spontaneous
  Country: US (occurrence: US)
  Receive Date: 20230119
  Receipt Date: 20230303
  Transmission Date: 20230418
  Serious: No
  Sender: FDA-Public Use
  Company Number: US-JNJFOC-20230126515

PATIENT
  Age: 82 Year
  Sex: Female

DRUGS (1)
  1. TYLENOL 8 HR ARTHRITIS PAIN [Suspect]
     Active Substance: ACETAMINOPHEN
     Indication: Arthralgia
     Route: 065
     Dates: start: 20230109

REACTIONS (2)
  - Product package associated injury [Recovering/Resolving]
  - Product packaging issue [Unknown]

NARRATIVE: CASE EVENT DATE: 20230109
